FAERS Safety Report 4411282-4 (Version None)
Quarter: 2004Q2

REPORT INFORMATION
  Report Type: 
  Country: None (occurrence: None)
  Receive Date: 20040630
  Receipt Date: 20040429
  Transmission Date: 20050107
  Serious: No
  Sender: FDA-Public Use
  Company Number: 04P-163-0259306-00

PATIENT
  Age: 57 Year
  Sex: Female
  Weight: 118.3888 kg

DRUGS (14)
  1. HUMIRA [Suspect]
     Indication: RHEUMATOID ARTHRITIS
     Dosage: 40 MG, 1 IN 2 WK, SUBCUTANEOUS
     Route: 058
     Dates: start: 20040315
  2. AMLODIPINE BESYLATE [Concomitant]
  3. GLIPIZIDE [Concomitant]
  4. PREDNISONE [Concomitant]
  5. FAMOTIDINE [Concomitant]
  6. VENLAFAXINE HCL [Concomitant]
  7. MULTI-VITAMINS [Concomitant]
  8. ASPIRIN [Concomitant]
  9. BETACAROTENE [Concomitant]
  10. ACTIFED [Concomitant]
  11. VICODIN [Concomitant]
  12. TIMOLOL MALEATE [Concomitant]
  13. LOBAGAN [Concomitant]
  14. PILOCARPINE [Concomitant]

REACTIONS (3)
  - DRUG INEFFECTIVE [None]
  - DYSPNOEA [None]
  - VISION BLURRED [None]
